FAERS Safety Report 10627399 (Version 2)
Quarter: 2015Q1

REPORT INFORMATION
  Report Type: Spontaneous
  Country: FI (occurrence: FI)
  Receive Date: 20141205
  Receipt Date: 20150112
  Transmission Date: 20150720
  Serious: Yes (Hospitalization)
  Sender: FDA-Public Use
  Company Number: FI-ROCHE-1502662

PATIENT
  Age: 45 Year
  Sex: Male

DRUGS (10)
  1. OXALIPLATIN. [Concomitant]
     Active Substance: OXALIPLATIN
     Indication: GASTROINTESTINAL CARCINOMA
     Dosage: 4 CYCLES
     Route: 042
     Dates: start: 20130408, end: 20130610
  2. ZALTRAP [Concomitant]
     Active Substance: ZIV-AFLIBERCEPT
     Indication: GASTROINTESTINAL CARCINOMA
     Dosage: 7 CYCLES
     Route: 042
     Dates: start: 20140428, end: 20140909
  3. XELODA [Suspect]
     Active Substance: CAPECITABINE
     Indication: GASTROINTESTINAL CARCINOMA
     Dosage: 23 CYCLES
     Route: 048
     Dates: start: 20140408, end: 20140922
  4. OXALIPLATIN. [Concomitant]
     Active Substance: OXALIPLATIN
     Dosage: 2 CYCLES
     Route: 042
     Dates: start: 20140213, end: 20140307
  5. IRINOTECAN [Concomitant]
     Active Substance: IRINOTECAN
     Indication: GASTROINTESTINAL CARCINOMA
     Route: 042
     Dates: start: 20140428, end: 20140428
  6. AVASTIN [Suspect]
     Active Substance: BEVACIZUMAB
     Indication: GASTROINTESTINAL CARCINOMA
     Dosage: 13 CYCLES
     Route: 042
     Dates: start: 20130429, end: 20140307
  7. AVASTIN [Suspect]
     Active Substance: BEVACIZUMAB
     Route: 042
     Dates: start: 20140328, end: 20140328
  8. OXALIPLATIN. [Concomitant]
     Active Substance: OXALIPLATIN
     Route: 042
     Dates: start: 20140328, end: 20140328
  9. IRINOTECAN [Concomitant]
     Active Substance: IRINOTECAN
     Route: 042
     Dates: start: 20140519, end: 20140519
  10. IRINOTECAN [Concomitant]
     Active Substance: IRINOTECAN
     Dosage: 5 CYCLES
     Route: 042
     Dates: start: 20140609, end: 20140909

REACTIONS (1)
  - Congestive cardiomyopathy [Recovering/Resolving]

NARRATIVE: CASE EVENT DATE: 201409
